FAERS Safety Report 9127386 (Version 1)
Quarter: 2013Q1

REPORT INFORMATION
  Report Type: Spontaneous
  Country: US (occurrence: US)
  Receive Date: 20130122
  Receipt Date: 20130122
  Transmission Date: 20140127
  Serious: Yes (Other)
  Sender: FDA-Public Use
  Company Number: US-RB-048688-13

PATIENT
  Sex: Female

DRUGS (2)
  1. SUBUTEX [Suspect]
     Dates: start: 200705, end: 200706
  2. SUBUTEX [Suspect]
     Dates: start: 200706, end: 20071229

REACTIONS (2)
  - Premature delivery [Recovered/Resolved]
  - Exposure during pregnancy [Recovered/Resolved]
